FAERS Safety Report 6957035-4 (Version None)
Quarter: 2010Q3

REPORT INFORMATION
  Report Type: 
  Country: None (occurrence: None)
  Receive Date: 20100827
  Receipt Date: 20100827
  Transmission Date: 20110219
  Serious: No
  Sender: FDA-Public Use
  Company Number: None

PATIENT
  Sex: Female

DRUGS (1)
  1. DORZOLAMIDE HYDROCHLORIDE AND TIMOLOL MALEATE [Suspect]
     Indication: GLAUCOMA
     Dosage: ONE DROP THREE TIME AD DAY BOTH EYES
     Route: 047
     Dates: start: 20100805, end: 20100812

REACTIONS (3)
  - EYE PAIN [None]
  - OCULAR HYPERAEMIA [None]
  - PRODUCT SUBSTITUTION ISSUE [None]
